FAERS Safety Report 7129237-8 (Version None)
Quarter: 2010Q4

REPORT INFORMATION
  Report Type: 
  Country: None (occurrence: None)
  Receive Date: 20101130
  Receipt Date: 20101119
  Transmission Date: 20110411
  Serious: Yes (Death, Hospitalization, Other)
  Sender: FDA-Public Use
  Company Number: JP-JNJFOC-20100406004

PATIENT
  Sex: Female
  Weight: 47 kg

DRUGS (8)
  1. REMICADE [Suspect]
     Indication: RHEUMATOID ARTHRITIS
     Route: 042
     Dates: start: 20020101
  2. REMICADE [Suspect]
     Route: 042
     Dates: start: 20020101
  3. REMICADE [Suspect]
     Route: 042
     Dates: start: 20020101
  4. RHEUMATREX [Suspect]
     Indication: RHEUMATOID ARTHRITIS
     Route: 048
     Dates: start: 20020101
  5. ENBREL [Suspect]
     Indication: RHEUMATOID ARTHRITIS
     Route: 065
     Dates: start: 20020101
  6. ENBREL [Suspect]
     Route: 065
     Dates: start: 20020101
  7. PREDNISOLONE [Suspect]
     Indication: RHEUMATOID ARTHRITIS
     Route: 048
     Dates: start: 20020101
  8. TOCILIZUMAB [Concomitant]

REACTIONS (4)
  - ANGIOSARCOMA [None]
  - BRAIN ABSCESS [None]
  - LUNG CANCER METASTATIC [None]
  - METASTASES TO LIVER [None]
